FAERS Safety Report 21496440 (Version 1)
Quarter: 2022Q4

REPORT INFORMATION
  Report Type: Spontaneous
  Country: US (occurrence: US)
  Receive Date: 20221022
  Receipt Date: 20221022
  Transmission Date: 20230113
  Serious: No
  Sender: FDA-Public Use
  Company Number: US-CELLTRION INC.-2022US014066

PATIENT

DRUGS (2)
  1. INFLECTRA [Suspect]
     Active Substance: INFLIXIMAB-DYYB
     Indication: Product used for unknown indication
     Dosage: X INFLECTRA 10MG/20ML DIRECTIONS: INJECT 900 MG OF INFLECTRA FREQUENCY: ONCE EVERY 6 WEEKS QUANTITY:
  2. INFLECTRA [Suspect]
     Active Substance: INFLIXIMAB-DYYB
     Dosage: 900 MILLIGRAM, CYCLIC  (ONCE EVERY 6 WEEKS)
     Route: 065

REACTIONS (1)
  - Unevaluable event [Unknown]
